FAERS Safety Report 13340034 (Version 1)
Quarter: 2017Q1

REPORT INFORMATION
  Report Type: Report from Study
  Country: BR (occurrence: BR)
  Receive Date: 20170316
  Receipt Date: 20170316
  Transmission Date: 20170428
  Serious: Yes (Hospitalization)
  Sender: FDA-Public Use
  Company Number: PHHY2017BR038723

PATIENT
  Sex: Female
  Weight: 45 kg

DRUGS (1)
  1. EXELON PATCH [Suspect]
     Active Substance: RIVASTIGMINE
     Indication: DEMENTIA ALZHEIMER^S TYPE
     Dosage: 13.3 MG, QD (15 CM2)
     Route: 062

REACTIONS (3)
  - Infection [Unknown]
  - Aspiration [Unknown]
  - Drug ineffective [Unknown]
